FAERS Safety Report 11660872 (Version 2)
Quarter: 2015Q4

REPORT INFORMATION
  Report Type: Spontaneous
  Country: FR (occurrence: FR)
  Receive Date: 20151026
  Receipt Date: 20151105
  Transmission Date: 20160304
  Serious: Yes (Death, Other)
  Sender: FDA-Public Use
  Company Number: PHHY2015FR134687

PATIENT
  Age: 12 Year
  Sex: Female
  Weight: 33 kg

DRUGS (1)
  1. VANCOMYCIN SANDOZ [Suspect]
     Active Substance: VANCOMYCIN
     Indication: IMMUNE SYSTEM DISORDER
     Dosage: 1.5 G, QD
     Route: 042
     Dates: start: 20150721

REACTIONS (5)
  - Administration site extravasation [Unknown]
  - Incorrect route of drug administration [Recovered/Resolved]
  - Medication error [Recovered/Resolved]
  - Injection site necrosis [Unknown]
  - Cardiac failure [Fatal]

NARRATIVE: CASE EVENT DATE: 20150721
